FAERS Safety Report 7690735-X (Version None)
Quarter: 2011Q3

REPORT INFORMATION
  Report Type: 
  Country: None (occurrence: None)
  Receive Date: 20110818
  Receipt Date: 20110810
  Transmission Date: 20111222
  Serious: Yes (Hospitalization)
  Sender: FDA-Public Use
  Company Number: US-ASTELLAS-2011US004826

PATIENT
  Sex: Female

DRUGS (2)
  1. ERLOTINIB HYDROCHLORIDE [Suspect]
     Indication: LUNG NEOPLASM MALIGNANT
     Dosage: 150 MG, UID/QD
     Route: 048
     Dates: start: 20110728
  2. ERLOTINIB HYDROCHLORIDE [Suspect]
     Dosage: 150 MG, QOD
     Route: 048
     Dates: start: 20110801

REACTIONS (5)
  - DYSPNOEA [None]
  - BLOOD ELECTROLYTES ABNORMAL [None]
  - CONFUSIONAL STATE [None]
  - CRYING [None]
  - RASH [None]
